FAERS Safety Report 25954391 (Version 1)
Quarter: 2025Q4

REPORT INFORMATION
  Report Type: Spontaneous
  Country: EU (occurrence: EU)
  Receive Date: 20251023
  Receipt Date: 20251023
  Transmission Date: 20260118
  Serious: Yes (Disabling)
  Sender: ABBVIE
  Company Number: None

PATIENT
  Age: 24 Year
  Sex: Female
  Weight: 54 kg

DRUGS (1)
  1. CITALOPRAM HYDROBROMIDE [Suspect]
     Active Substance: CITALOPRAM HYDROBROMIDE
     Indication: Insomnia
     Dosage: DOSE TEXT - 0-0-20 MG; AS A SLEEPING AID
     Route: 048
     Dates: start: 20181219, end: 20181223

REACTIONS (17)
  - Genital pain [Not Recovered/Not Resolved]
  - Anhedonia [Recovered/Resolved]
  - Derealisation [Recovered/Resolved]
  - Cystitis noninfective [Recovered/Resolved]
  - Female orgasmic disorder [Not Recovered/Not Resolved]
  - Genital atrophy [Not Recovered/Not Resolved]
  - Hypoaesthesia [Not Recovered/Not Resolved]
  - Loss of libido [Not Recovered/Not Resolved]
  - Arrhythmia [Recovered/Resolved]
  - Suicidal ideation [Recovered/Resolved]
  - Heart rate increased [Recovered/Resolved]
  - Withdrawal syndrome [Recovered/Resolved]
  - Sexual dysfunction [Not Recovered/Not Resolved]
  - Diarrhoea [Recovered/Resolved]
  - Insomnia [Recovered/Resolved]
  - Tremor [Recovered/Resolved]
  - Product use in unapproved indication [Unknown]

NARRATIVE: CASE EVENT DATE: 20181201
